FAERS Safety Report 8195837-X (Version None)
Quarter: 2012Q1

REPORT INFORMATION
  Report Type: 
  Country: None (occurrence: None)
  Receive Date: 20120308
  Receipt Date: 20120302
  Transmission Date: 20120608
  Serious: Yes (Hospitalization, Other)
  Sender: FDA-Public Use
  Company Number: DE-ABBOTT-12P-062-0910362-00

PATIENT
  Sex: Male
  Weight: 94 kg

DRUGS (3)
  1. METHOTREXATE [Concomitant]
     Indication: RHEUMATOID ARTHRITIS
     Dosage: ONCE PER WEEK
     Route: 058
     Dates: start: 20000101
  2. HUMIRA [Suspect]
     Indication: RHEUMATOID ARTHRITIS
     Route: 058
     Dates: start: 20040310, end: 20120111
  3. HUMIRA [Suspect]
     Dates: start: 20120301

REACTIONS (6)
  - UMBILICAL HERNIA [None]
  - WOUND INFECTION [None]
  - LIMB INJURY [None]
  - OEDEMA PERIPHERAL [None]
  - WOUND COMPLICATION [None]
  - KNEE ARTHROPLASTY [None]
